FAERS Safety Report 14558160 (Version 1)
Quarter: 2018Q1

REPORT INFORMATION
  Report Type: Spontaneous
  Country: US (occurrence: US)
  Receive Date: 20180221
  Receipt Date: 20180221
  Transmission Date: 20180509
  Serious: No
  Sender: FDA-Public Use
  Company Number: US-PERRIGO-17US002188

PATIENT
  Age: 1 Year
  Sex: Female
  Weight: 11.79 kg

DRUGS (3)
  1. ADVIL [Concomitant]
     Active Substance: IBUPROFEN
     Indication: RHINORRHOEA
  2. LOPERAMIDE HYDROCHLORIDE. [Suspect]
     Active Substance: LOPERAMIDE HYDROCHLORIDE
     Indication: ACCIDENTAL EXPOSURE TO PRODUCT BY CHILD
     Dosage: UNKNOWN, SINGLE
     Route: 048
     Dates: start: 20170305, end: 20170305
  3. ADVIL [Concomitant]
     Active Substance: IBUPROFEN
     Indication: TEETHING
     Dosage: UNK
     Route: 065

REACTIONS (3)
  - Flushing [Unknown]
  - Body temperature increased [Unknown]
  - Accidental exposure to product by child [Recovered/Resolved]

NARRATIVE: CASE EVENT DATE: 20170305
